FAERS Safety Report 11742285 (Version 1)
Quarter: 2015Q4

REPORT INFORMATION
  Report Type: Spontaneous
  Country: TR (occurrence: TR)
  Receive Date: 20151116
  Receipt Date: 20151116
  Transmission Date: 20160304
  Serious: Yes (Life-Threatening)
  Sender: FDA-Public Use
  Company Number: TR-MYLANLABS-2015M1039476

PATIENT

DRUGS (2)
  1. PHENYTOIN. [Suspect]
     Active Substance: PHENYTOIN
     Dosage: 5MG/KG/DAY DIVIDED INTO 2 DOSES (MAINTENANCE DOSE)
     Route: 041
  2. PHENYTOIN. [Suspect]
     Active Substance: PHENYTOIN
     Indication: SEIZURE
     Dosage: 20MG/KG/HOUR AS LOADING DOSE
     Route: 065

REACTIONS (1)
  - Anaphylactic shock [Recovered/Resolved]
